FAERS Safety Report 4708329-4 (Version None)
Quarter: 2005Q2

REPORT INFORMATION
  Report Type: 
  Country: None (occurrence: None)
  Receive Date: 20050630
  Receipt Date: 20050616
  Transmission Date: 20051028
  Serious: Yes (Hospitalization)
  Sender: FDA-Public Use
  Company Number: THYM-10581

PATIENT
  Age: 41 Year
  Sex: Female
  Weight: 71 kg

DRUGS (5)
  1. THYMOGLOBULIN [Suspect]
     Indication: KIDNEY TRANSPLANT REJECTION
     Dosage: 100 MG QD IV
     Route: 042
     Dates: start: 20040217, end: 20040217
  2. TACROLIMUS [Concomitant]
  3. RAPAMUNE [Concomitant]
  4. PREDNISONE [Concomitant]
  5. CAMPATH [Concomitant]

REACTIONS (4)
  - CYTOMEGALOVIRUS INFECTION [None]
  - HAEMOLYTIC ANAEMIA [None]
  - RASH [None]
  - SOFT TISSUE INFECTION [None]
